FAERS Safety Report 10278575 (Version 2)
Quarter: 2014Q4

REPORT INFORMATION
  Report Type: Spontaneous
  Country: BR (occurrence: BR)
  Receive Date: 20140704
  Receipt Date: 20141006
  Transmission Date: 20150528
  Serious: Yes (Other)
  Sender: FDA-Public Use
  Company Number: BR-BRISTOL-MYERS SQUIBB COMPANY-21110549

PATIENT
  Age: 54 Year
  Sex: Female
  Weight: 65 kg

DRUGS (13)
  1. OMEPRAZOLE. [Suspect]
     Active Substance: OMEPRAZOLE
     Indication: ABDOMINAL PAIN UPPER
     Route: 048
     Dates: start: 201403
  2. NIMESULIDE [Suspect]
     Active Substance: NIMESULIDE
     Dates: start: 20140924
  3. DIAZEPAM. [Concomitant]
     Active Substance: DIAZEPAM
     Indication: INSOMNIA
     Route: 048
     Dates: start: 201312
  4. LOSARTAN [Concomitant]
     Active Substance: LOSARTAN
     Indication: BLOOD PRESSURE FLUCTUATION
  5. PROMETHAZINE [Concomitant]
     Active Substance: PROMETHAZINE\PROMETHAZINE HYDROCHLORIDE
     Indication: ABDOMINAL PAIN UPPER
     Route: 048
     Dates: start: 201403
  6. CICLOSPORIN [Concomitant]
     Active Substance: CYCLOSPORINE
     Indication: BLOOD CHOLESTEROL INCREASED
     Route: 048
  7. PREDNISONE. [Concomitant]
     Active Substance: PREDNISONE
     Indication: RHEUMATOID ARTHRITIS
     Route: 048
     Dates: start: 2014
  8. HEPARINOID [Concomitant]
     Active Substance: CHONDROITIN SULFATE (BOVINE)
  9. SILYMARIN [Concomitant]
     Active Substance: MILK THISTLE
  10. METFORMIN HCL [Suspect]
     Active Substance: METFORMIN HYDROCHLORIDE
     Indication: DIABETES MELLITUS
     Route: 048
  11. CIMZIA [Suspect]
     Active Substance: CERTOLIZUMAB PEGOL
     Indication: RHEUMATOID ARTHRITIS
     Dosage: 1DF:200MG/ML TOTAL DOSE?200MG:09-SEP-2014 TO 24-SEP-2014
     Route: 058
     Dates: start: 20140326, end: 20140423
  12. PROMETHAZINE [Concomitant]
     Active Substance: PROMETHAZINE\PROMETHAZINE HYDROCHLORIDE
     Indication: ARTHRALGIA
     Route: 048
     Dates: start: 201403
  13. BETAMETHASONE DIPROPIONATE. [Suspect]
     Active Substance: BETAMETHASONE DIPROPIONATE
     Indication: RHEUMATOID ARTHRITIS
     Route: 030
     Dates: start: 2012, end: 201403

REACTIONS (13)
  - Transaminases increased [Unknown]
  - Humoral immune defect [Recovered/Resolved]
  - Arthralgia [Not Recovered/Not Resolved]
  - Hepatic steatosis [Recovered/Resolved]
  - Pain [Not Recovered/Not Resolved]
  - Skin cancer [Unknown]
  - Generalised oedema [Not Recovered/Not Resolved]
  - Dry mouth [Not Recovered/Not Resolved]
  - Abdominal pain upper [Recovered/Resolved]
  - Odynophagia [Not Recovered/Not Resolved]
  - Blood glucose increased [Recovered/Resolved]
  - Osteitis [Unknown]
  - Herpes virus infection [Recovered/Resolved]

NARRATIVE: CASE EVENT DATE: 2014
